FAERS Safety Report 15061763 (Version 2)
Quarter: 2018Q3

REPORT INFORMATION
  Report Type: Spontaneous
  Country: JP (occurrence: JP)
  Receive Date: 20180625
  Receipt Date: 20180717
  Transmission Date: 20181010
  Serious: Yes (Hospitalization)
  Sender: FDA-Public Use
  Company Number: JP-ROCHE-2144707

PATIENT
  Age: 89 Year
  Sex: Male
  Weight: 52 kg

DRUGS (5)
  1. PANTOSIN [Concomitant]
     Active Substance: PANTETHINE
     Route: 048
  2. PURSENNID [Concomitant]
     Active Substance: SENNOSIDES A AND B
     Route: 048
  3. AMITIZA [Concomitant]
     Active Substance: LUBIPROSTONE
     Route: 048
  4. RIVOTRIL [Suspect]
     Active Substance: CLONAZEPAM
     Indication: PRODUCT USED FOR UNKNOWN INDICATION
     Route: 048
     Dates: start: 20180521, end: 2018
  5. PAXIL [Suspect]
     Active Substance: PAROXETINE HYDROCHLORIDE
     Indication: PRODUCT USED FOR UNKNOWN INDICATION
     Route: 048
     Dates: start: 20180521, end: 20180525

REACTIONS (4)
  - Dizziness [Unknown]
  - Muscular weakness [Unknown]
  - Parkinsonism [Recovered/Resolved]
  - Asthenia [Unknown]

NARRATIVE: CASE EVENT DATE: 20180522
